FAERS Safety Report 6571720-8 (Version None)
Quarter: 2010Q1

REPORT INFORMATION
  Report Type: 
  Country: None (occurrence: None)
  Receive Date: 20100205
  Receipt Date: 20100126
  Transmission Date: 20100710
  Serious: Yes (Life-Threatening, Hospitalization)
  Sender: FDA-Public Use
  Company Number: JP-PFIZER INC-2010012360

PATIENT
  Age: 65 Year
  Sex: Male

DRUGS (6)
  1. CELECOX [Suspect]
     Indication: BACK PAIN
     Dosage: UNK
     Route: 048
     Dates: start: 20091217
  2. MUCOSTA [Suspect]
     Indication: BACK PAIN
     Dosage: UNK
     Route: 048
     Dates: start: 20091217
  3. NU LOTAN [Concomitant]
     Route: 048
  4. WARFARIN [Concomitant]
     Route: 048
  5. ARTIST [Concomitant]
     Route: 048
  6. LOXONIN [Concomitant]

REACTIONS (1)
  - INTERSTITIAL LUNG DISEASE [None]
